FAERS Safety Report 7619791-1 (Version None)
Quarter: 2011Q3

REPORT INFORMATION
  Report Type: 
  Country: None (occurrence: None)
  Receive Date: 20110719
  Receipt Date: 20110711
  Transmission Date: 20111222
  Serious: Yes (Hospitalization)
  Sender: FDA-Public Use
  Company Number: DE-TEVA-290702GER

PATIENT
  Sex: Female

DRUGS (4)
  1. VALPROIC ACID [Suspect]
     Indication: CONVULSION NEONATAL
  2. PYRIDOXINE HCL [Concomitant]
     Indication: PARTIAL SEIZURES
  3. SULTIAME [Concomitant]
     Indication: CONVULSION
  4. PHENOBARBITAL TAB [Concomitant]
     Indication: PARTIAL SEIZURES

REACTIONS (3)
  - RESPIRATORY FAILURE [None]
  - CONDITION AGGRAVATED [None]
  - RHABDOMYOLYSIS [None]
